FAERS Safety Report 6552867-9 (Version None)
Quarter: 2010Q1

REPORT INFORMATION
  Report Type: 
  Country: None (occurrence: None)
  Receive Date: 20100122
  Receipt Date: 20100113
  Transmission Date: 20100710
  Serious: Yes (Life-Threatening, Other)
  Sender: FDA-Public Use
  Company Number: 2009-04717

PATIENT
  Age: 65 Year
  Sex: Female
  Weight: 50 kg

DRUGS (12)
  1. VELCADE [Suspect]
     Indication: MULTIPLE MYELOMA
     Dosage: 1.8 MG, INTRAVENOUS
     Route: 042
     Dates: start: 20090825, end: 20091030
  2. GOSHAJINKIGAN (HERBAL EXTRACT NOS) [Suspect]
     Indication: PROPHYLAXIS
     Dosage: 7.5 G; ORAL
     Route: 048
     Dates: start: 20090908, end: 20091030
  3. LIPITOR [Concomitant]
  4. LANSOPRAZOLE [Concomitant]
  5. PREDNISOLONE [Concomitant]
  6. ALFAROL (ALFACALCIDOL) [Concomitant]
  7. BASEN (VOGLIBOSE) [Concomitant]
  8. ZOVIRAX [Concomitant]
  9. LASIX [Concomitant]
  10. ULCERLMIN (SUCRALFATE0 [Concomitant]
  11. BIOFERMIN (STREPTOCOCCUS FAECALIS, LACTOBACILLUS ACIDOPHILUS, BACILLUS [Concomitant]
  12. ALDACTONE [Concomitant]

REACTIONS (11)
  - BLOOD PRESSURE INCREASED [None]
  - DEHYDRATION [None]
  - DIARRHOEA [None]
  - ELECTROLYTE IMBALANCE [None]
  - HAEMATOMA [None]
  - HYPOKALAEMIA [None]
  - LOSS OF CONSCIOUSNESS [None]
  - PULSE ABSENT [None]
  - RESPIRATORY ARREST [None]
  - SICK SINUS SYNDROME [None]
  - SYNCOPE [None]
